FAERS Safety Report 16017487 (Version 5)
Quarter: 2021Q2

REPORT INFORMATION
  Report Type: Report from Study
  Country: AR (occurrence: AR)
  Receive Date: 20190228
  Receipt Date: 20210402
  Transmission Date: 20210716
  Serious: Yes (Hospitalization)
  Sender: FDA-Public Use
  Company Number: PHHY2019AR043082

PATIENT
  Sex: Male

DRUGS (2)
  1. COSENTYX [Suspect]
     Active Substance: SECUKINUMAB
     Indication: PSORIATIC ARTHROPATHY
     Dosage: 150 MG, (EVERY 15 DAYS)
     Route: 058
     Dates: start: 201810, end: 201812
  2. COSENTYX [Suspect]
     Active Substance: SECUKINUMAB
     Dosage: 300 MG, QMO
     Route: 058
     Dates: start: 20181010

REACTIONS (10)
  - Back pain [Not Recovered/Not Resolved]
  - Arthralgia [Not Recovered/Not Resolved]
  - Symptom recurrence [Unknown]
  - Memory impairment [Unknown]
  - Pain [Not Recovered/Not Resolved]
  - Device related infection [Not Recovered/Not Resolved]
  - Fibrous histiocytoma [Unknown]
  - Product supply issue [Unknown]
  - Musculoskeletal stiffness [Not Recovered/Not Resolved]
  - Inappropriate schedule of product administration [Unknown]
